FAERS Safety Report 23516163 (Version 1)
Quarter: 2024Q1

REPORT INFORMATION
  Report Type: 
  Country: None (occurrence: None)
  Receive Date: 20240213
  Receipt Date: 20240213
  Transmission Date: 20240410
  Serious: No
  Sender: FDA-Public Use
  Company Number: US-ROCHE-2065235

PATIENT

DRUGS (6)
  1. RITUXIMAB [Suspect]
     Active Substance: RITUXIMAB
     Dosage: ON DAY 1 FOR 6 CYCLES AS A INDUCTION THERAPY
  2. RITUXIMAB [Suspect]
     Active Substance: RITUXIMAB
     Dosage: MAINTENANCE THERAPY
  3. BENDAMUSTINE [Suspect]
     Active Substance: BENDAMUSTINE
     Dosage: ON DAYS 1 AND 2 AS A INDUCTION THERAPY
  4. LENALIDOMIDE [Suspect]
     Active Substance: LENALIDOMIDE
     Dosage: 28-DAY CYCLE
  5. BORTEZOMIB [Suspect]
     Active Substance: BORTEZOMIB
     Dosage: DAYS 1, 4, 8, AND 11,
  6. BORTEZOMIB [Suspect]
     Active Substance: BORTEZOMIB
     Dosage: DAYS 1, 4, 8, AND 11,

REACTIONS (78)
  - Febrile neutropenia [None]
  - Neutropenia [None]
  - Anaemia [None]
  - Fatigue [None]
  - Peripheral sensory neuropathy [None]
  - Thrombocytopenia [None]
  - Diarrhoea [None]
  - Lymphocyte count decreased [None]
  - White blood cell count decreased [None]
  - Hyperglycaemia [None]
  - Neutrophil count decreased [None]
  - Platelet count decreased [None]
  - Haemolysis [None]
  - Cardiac failure [None]
  - Restrictive cardiomyopathy [None]
  - Pyrexia [None]
  - Infusion related reaction [None]
  - Injection site reaction [None]
  - Non-cardiac chest pain [None]
  - Pruritus [None]
  - Rash maculo-papular [None]
  - Urticaria [None]
  - Abdominal pain [None]
  - Colitis [None]
  - Constipation [None]
  - Dysphagia [None]
  - Stomatitis [None]
  - Nausea [None]
  - Small intestinal obstruction [None]
  - Vomiting [None]
  - Gastrointestinal disorder [None]
  - Hypersensitivity [None]
  - Cystitis [None]
  - Lip infection [None]
  - Pneumonia [None]
  - Otitis media [None]
  - Peripheral nerve infection [None]
  - Phlebitis infective [None]
  - Sepsis [None]
  - Skin infection [None]
  - Tooth infection [None]
  - Upper respiratory tract infection [None]
  - Urinary tract infection [None]
  - Infection [None]
  - Alanine aminotransferase increased [None]
  - Blood alkaline phosphatase increased [None]
  - Aspartate aminotransferase increased [None]
  - Blood cholesterol increased [None]
  - International normalised ratio increased [None]
  - Lipase increased [None]
  - Weight decreased [None]
  - Decreased appetite [None]
  - Dehydration [None]
  - Hyperkalaemia [None]
  - Hypokalaemia [None]
  - Hyponatraemia [None]
  - Hypophosphataemia [None]
  - Tumour lysis syndrome [None]
  - Arthralgia [None]
  - Arthritis [None]
  - Back pain [None]
  - Muscular weakness [None]
  - Myalgia [None]
  - Dizziness [None]
  - Headache [None]
  - Peripheral motor neuropathy [None]
  - Presyncope [None]
  - Cerebrovascular accident [None]
  - Syncope [None]
  - Agitation [None]
  - Confusional state [None]
  - Depression [None]
  - Dyspnoea [None]
  - Acute kidney injury [None]
  - Chronic kidney disease [None]
  - Hypertension [None]
  - Hypotension [None]
  - Embolism [None]
